FAERS Safety Report 21783751 (Version 2)
Quarter: 2023Q1

REPORT INFORMATION
  Report Type: Spontaneous
  Country: US (occurrence: US)
  Receive Date: 20221227
  Receipt Date: 20230215
  Transmission Date: 20230418
  Serious: No
  Sender: FDA-Public Use
  Company Number: US-009507513-2212USA008369

PATIENT
  Sex: Female
  Weight: 84 kg

DRUGS (3)
  1. KEYTRUDA [Suspect]
     Active Substance: PEMBROLIZUMAB
     Indication: Endometrial cancer recurrent
     Dosage: 200 MILLIGRAM, EVERY 21 DAYS (Q3W)
     Route: 042
     Dates: start: 20221121, end: 20230104
  2. LENVATINIB MESYLATE [Concomitant]
     Active Substance: LENVATINIB MESYLATE
     Indication: Neoplasm malignant
     Dosage: 20 MILLIGRAMS TOTAL DAILY DOSE
     Route: 048
     Dates: start: 20221121, end: 20230104
  3. GABAPENTIN [Concomitant]
     Active Substance: GABAPENTIN
     Dosage: 300 MILLIGRAMS TOTAL DAILY DOSE
     Route: 048
     Dates: start: 20221230

REACTIONS (4)
  - Perineal pain [Recovered/Resolved]
  - Burning sensation [Recovered/Resolved]
  - Oral discomfort [Recovered/Resolved]
  - Vulvovaginal burning sensation [Unknown]
